FAERS Safety Report 16649876 (Version 1)
Quarter: 2019Q3

REPORT INFORMATION
  Report Type: Spontaneous
  Country: CA (occurrence: CA)
  Receive Date: 20190731
  Receipt Date: 20190731
  Transmission Date: 20191004
  Serious: Yes (Other)
  Sender: FDA-Public Use
  Company Number: CA-CONCORDIA PHARMACEUTICALS INC.-GSH201907-001725

PATIENT
  Sex: Male

DRUGS (4)
  1. HYDROXYCHLOROQUINE [Suspect]
     Active Substance: HYDROXYCHLOROQUINE
     Indication: PRODUCT USED FOR UNKNOWN INDICATION
     Route: 065
  2. METHOTREXATE. [Concomitant]
     Active Substance: METHOTREXATE
  3. REMICADE [Concomitant]
     Active Substance: INFLIXIMAB
  4. GOLD [Concomitant]
     Active Substance: GOLD

REACTIONS (1)
  - Glaucoma [Unknown]
